FAERS Safety Report 6301884-2 (Version None)
Quarter: 2009Q3

REPORT INFORMATION
  Report Type: 
  Country: None (occurrence: None)
  Receive Date: 20090805
  Receipt Date: 20090723
  Transmission Date: 20100115
  Serious: Yes (Hospitalization, Other)
  Sender: FDA-Public Use
  Company Number: 100007653

PATIENT
  Age: 45 Year
  Sex: Male
  Weight: 81 kg

DRUGS (2)
  1. ESCITALOPRAM OXALATE [Suspect]
     Dosage: 200 MG, ONCE, ORAL
     Route: 048
     Dates: start: 20090714, end: 20090714
  2. ALCOHOL [Suspect]
     Dosage: ONCE, ORAL
     Route: 048
     Dates: start: 20090714, end: 20090714

REACTIONS (7)
  - ALCOHOL POISONING [None]
  - FATIGUE [None]
  - HYPERHIDROSIS [None]
  - HYPERTENSION [None]
  - INTENTIONAL OVERDOSE [None]
  - SUICIDE ATTEMPT [None]
  - TACHYCARDIA [None]
